FAERS Safety Report 10744480 (Version 1)
Quarter: 2015Q1

REPORT INFORMATION
  Report Type: Spontaneous
  Country: US (occurrence: None)
  Receive Date: 20150126
  Receipt Date: 20150126
  Transmission Date: 20150721
  Serious: Yes (Other)
  Sender: FDA-Public Use
  Company Number: None

PATIENT
  Age: 39 Year
  Sex: Female

DRUGS (1)
  1. FOLIC ACID. [Suspect]
     Active Substance: FOLIC ACID
     Indication: ANAEMIA
     Dosage: 1 PILL TWICE DAILY TAKEN BY  MOUTH
     Route: 048
     Dates: start: 20150122, end: 20150123

REACTIONS (4)
  - Dyspnoea [None]
  - Aphonia [None]
  - Pharyngeal oedema [None]
  - Oropharyngeal pain [None]

NARRATIVE: CASE EVENT DATE: 20150123
